FAERS Safety Report 15155826 (Version 1)
Quarter: 2018Q3

REPORT INFORMATION
  Report Type: Report from Study
  Country: AT (occurrence: AT)
  Receive Date: 20180717
  Receipt Date: 20180717
  Transmission Date: 20181010
  Serious: Yes (Hospitalization)
  Sender: FDA-Public Use
  Company Number: AT-US WORLDMEDS, LLC-STA_00018166

PATIENT
  Age: 72 Year
  Sex: Male

DRUGS (1)
  1. APOMORPHINE HYDROCHLORIDE [Suspect]
     Active Substance: APOMORPHINE HYDROCHLORIDE
     Indication: PARKINSON^S DISEASE
     Dosage: 5.5 MG/H
     Route: 058
     Dates: start: 20150127

REACTIONS (1)
  - Panniculitis [Recovered/Resolved]

NARRATIVE: CASE EVENT DATE: 20150210
